FAERS Safety Report 25181861 (Version 1)
Quarter: 2025Q2

REPORT INFORMATION
  Report Type: Spontaneous
  Country: AU (occurrence: AU)
  Receive Date: 20250410
  Receipt Date: 20250410
  Transmission Date: 20250717
  Serious: Yes (Other)
  Sender: ACCORD
  Company Number: None

PATIENT
  Age: 59 Year
  Sex: Male

DRUGS (2)
  1. METHOTREXATE [Suspect]
     Active Substance: METHOTREXATE
     Indication: Product used for unknown indication
  2. PREDNISOLONE [Concomitant]
     Active Substance: PREDNISOLONE

REACTIONS (10)
  - Disease progression [Unknown]
  - Hydrocephalus [Unknown]
  - Neurosarcoidosis [Unknown]
  - Shunt occlusion [Unknown]
  - Hyperglycaemia [Unknown]
  - Lumbar radiculopathy [Unknown]
  - Lymphadenopathy [Unknown]
  - Osteoporosis [Unknown]
  - Sarcoidosis [Unknown]
  - Drug ineffective [Unknown]
